FAERS Safety Report 9617982 (Version 1)
Quarter: 2013Q4

REPORT INFORMATION
  Report Type: Spontaneous
  Country: US (occurrence: US)
  Receive Date: 20131011
  Receipt Date: 20131011
  Transmission Date: 20140711
  Serious: Yes (Death)
  Sender: FDA-Public Use
  Company Number: US-EXELIXIS-CABO-13003400

PATIENT
  Sex: Male
  Weight: 84 kg

DRUGS (2)
  1. COMETRIQ [Suspect]
     Indication: PROSTATE CANCER
     Dosage: 140 MG, QD
     Route: 048
     Dates: start: 20130716
  2. COMETRIQ [Suspect]
     Indication: METASTASES TO BONE MARROW

REACTIONS (2)
  - Death [Fatal]
  - Off label use [Unknown]
